FAERS Safety Report 5254561-3 (Version None)
Quarter: 2007Q1

REPORT INFORMATION
  Report Type: 
  Country: None (occurrence: None)
  Receive Date: 20070302
  Receipt Date: 20070222
  Transmission Date: 20070707
  Serious: Yes (Disabling)
  Sender: FDA-Public Use
  Company Number: US-MERCK-0612USA01637

PATIENT
  Age: 59 Year
  Sex: Male

DRUGS (2)
  1. JANUVIA [Suspect]
     Indication: DIABETES MELLITUS NON-INSULIN-DEPENDENT
     Route: 048
     Dates: start: 20061101, end: 20061204
  2. JANUVIA [Suspect]
     Route: 048

REACTIONS (5)
  - ASTHENIA [None]
  - BURNING SENSATION [None]
  - DIPLOPIA [None]
  - DIZZINESS [None]
  - VISION BLURRED [None]
